FAERS Safety Report 4885262-9 (Version None)
Quarter: 2006Q1

REPORT INFORMATION
  Report Type: 
  Country: None (occurrence: None)
  Receive Date: 20060119
  Receipt Date: 20031208
  Transmission Date: 20060701
  Serious: Yes (Life-Threatening)
  Sender: FDA-Public Use
  Company Number: PHBS2003NO13780

PATIENT
  Age: 51 Year
  Sex: Female

DRUGS (1)
  1. PARLODEL [Suspect]
     Indication: PROLACTINOMA
     Dosage: 2.5 MG/DAY
     Route: 048
     Dates: start: 19990201, end: 20030701

REACTIONS (3)
  - ACUTE MYOCARDIAL INFARCTION [None]
  - CORONARY ARTERY OCCLUSION [None]
  - PULMONARY EMBOLISM [None]
